FAERS Safety Report 9274882 (Version 1)
Quarter: 2013Q2

REPORT INFORMATION
  Report Type: Spontaneous
  Country: US (occurrence: US)
  Receive Date: 20130507
  Receipt Date: 20130507
  Transmission Date: 20140414
  Serious: Yes (Hospitalization)
  Sender: FDA-Public Use
  Company Number: US-BAYER-2013-055331

PATIENT
  Age: 18 Year
  Sex: Female
  Weight: 95 kg

DRUGS (6)
  1. YAZ [Suspect]
     Indication: CONTRACEPTION
  2. YAZ [Suspect]
     Indication: POLYCYSTIC OVARIES
  3. ALBUTEROL [Concomitant]
     Dosage: 2 PUFF(S), EVERY 4-6 HOURS AS NEEDED
  4. ADVAIR [Concomitant]
     Dosage: 100/50, 1 PUFF
  5. AMOXICILLIN [Concomitant]
     Dosage: 500 MG, TID
     Route: 048
  6. TORADOL [Concomitant]

REACTIONS (1)
  - Pulmonary embolism [None]
